FAERS Safety Report 16022591 (Version 1)
Quarter: 2019Q1

REPORT INFORMATION
  Report Type: Spontaneous
  Country: JP (occurrence: JP)
  Receive Date: 20190301
  Receipt Date: 20190301
  Transmission Date: 20190418
  Serious: Yes (Hospitalization, Other)
  Sender: FDA-Public Use
  Company Number: JP-VIIV HEALTHCARE LIMITED-A201213425

PATIENT
  Age: 33 Year
  Sex: Male

DRUGS (2)
  1. KALETRA [Suspect]
     Active Substance: LOPINAVIR\RITONAVIR
     Indication: HIV INFECTION
     Dosage: UNK
     Route: 048
  2. ABACAVIR SULFATE + LAMIVUDINE [Suspect]
     Active Substance: ABACAVIR SULFATE\LAMIVUDINE
     Indication: HIV INFECTION
     Dosage: UNK
     Route: 048

REACTIONS (7)
  - Facial paresis [Unknown]
  - Aphasia [Unknown]
  - Dysarthria [Unknown]
  - Hemiparesis [Unknown]
  - Progressive multifocal leukoencephalopathy [Recovered/Resolved]
  - Dysphagia [Unknown]
  - Nuclear magnetic resonance imaging abnormal [Unknown]
